FAERS Safety Report 14793779 (Version 6)
Quarter: 2018Q2

REPORT INFORMATION
  Report Type: Spontaneous
  Country: ES (occurrence: ES)
  Receive Date: 20180423
  Receipt Date: 20180525
  Transmission Date: 20180711
  Serious: Yes (Death, Hospitalization, Other)
  Sender: FDA-Public Use
  Company Number: ES-JNJFOC-20180424604

PATIENT
  Age: 62 Year
  Sex: Male

DRUGS (23)
  1. HALOPERIDOL. [Suspect]
     Active Substance: HALOPERIDOL
     Indication: NERVOUS SYSTEM DISORDER
     Route: 065
  2. CLONAZEPAM. [Interacting]
     Active Substance: CLONAZEPAM
     Indication: EPILEPSY
     Route: 065
  3. FLUTICASONE W/SALMETEROL [Suspect]
     Active Substance: FLUTICASONE PROPIONATE\SALMETEROL XINAFOATE
     Indication: ASTHMA
     Dosage: 2 PUFFS
     Route: 048
  4. HALOPERIDOL. [Suspect]
     Active Substance: HALOPERIDOL
     Indication: PSYCHOTIC DISORDER
     Route: 065
  5. QUETIAPINA [Interacting]
     Active Substance: QUETIAPINE
     Indication: MAJOR DEPRESSION
     Route: 065
  6. LORATADINA [Interacting]
     Active Substance: LORATADINE
     Indication: RHINITIS ALLERGIC
     Route: 065
  7. METFORMIN [Suspect]
     Active Substance: METFORMIN HYDROCHLORIDE
     Indication: TYPE 2 DIABETES MELLITUS
     Route: 048
  8. VALPROIC ACID. [Interacting]
     Active Substance: VALPROIC ACID
     Indication: MANIA
     Route: 065
  9. TIOTROPIO [Suspect]
     Active Substance: TIOTROPIUM BROMIDE
     Indication: CHRONIC OBSTRUCTIVE PULMONARY DISEASE
     Route: 065
  10. HALOPERIDOL. [Suspect]
     Active Substance: HALOPERIDOL
     Indication: PSYCHOTIC DISORDER
     Route: 065
  11. HALOPERIDOL. [Suspect]
     Active Substance: HALOPERIDOL
     Indication: PSYCHOTIC DISORDER
     Dosage: 1-1-1-0
     Route: 065
  12. VALPROIC ACID. [Interacting]
     Active Substance: VALPROIC ACID
     Indication: EPILEPSY
     Route: 065
  13. METFORMIN [Suspect]
     Active Substance: METFORMIN HYDROCHLORIDE
     Indication: TYPE 2 DIABETES MELLITUS
     Dosage: 0-1-1-0
     Route: 048
  14. CLONAZEPAM. [Interacting]
     Active Substance: CLONAZEPAM
     Indication: EPILEPSY
     Route: 065
  15. LEVOTHYROXINE. [Suspect]
     Active Substance: LEVOTHYROXINE
     Indication: HYPOTHYROIDISM
     Route: 065
  16. HALOPERIDOL. [Suspect]
     Active Substance: HALOPERIDOL
     Indication: NERVOUS SYSTEM DISORDER
     Dosage: 1-1-1-0
     Route: 065
  17. QUETIAPINA [Interacting]
     Active Substance: QUETIAPINE
     Indication: MAJOR DEPRESSION
     Dosage: 1-1-1-0
     Route: 065
  18. QUETIAPINA [Interacting]
     Active Substance: QUETIAPINE
     Indication: SCHIZOPHRENIA
     Dosage: 1-1-1-0
     Route: 065
  19. VALPROIC ACID. [Interacting]
     Active Substance: VALPROIC ACID
     Indication: MANIA
     Route: 065
  20. VALPROIC ACID. [Interacting]
     Active Substance: VALPROIC ACID
     Indication: EPILEPSY
     Route: 065
  21. TIOTROPIO [Suspect]
     Active Substance: TIOTROPIUM BROMIDE
     Indication: CHRONIC OBSTRUCTIVE PULMONARY DISEASE
     Dosage: 2 PUFFS
     Route: 065
  22. HALOPERIDOL. [Suspect]
     Active Substance: HALOPERIDOL
     Indication: NERVOUS SYSTEM DISORDER
     Route: 065
  23. QUETIAPINA [Interacting]
     Active Substance: QUETIAPINE
     Indication: SCHIZOPHRENIA
     Route: 065

REACTIONS (6)
  - Cardiac failure [Fatal]
  - Ventricular fibrillation [Fatal]
  - Coma [Unknown]
  - Drug interaction [Fatal]
  - Prescribed overdose [Unknown]
  - Off label use [Unknown]
